FAERS Safety Report 5857412-9 (Version None)
Quarter: 2008Q3

REPORT INFORMATION
  Report Type: 
  Country: None (occurrence: None)
  Receive Date: 20080826
  Receipt Date: 20080820
  Transmission Date: 20090109
  Serious: Yes (Death, Hospitalization)
  Sender: FDA-Public Use
  Company Number: US-WYE-H05647308

PATIENT
  Age: 66 Year
  Sex: Female

DRUGS (1)
  1. TORISEL [Suspect]
     Indication: OVARIAN CANCER
     Route: 042
     Dates: start: 20080721, end: 20080721

REACTIONS (3)
  - CARDIO-RESPIRATORY ARREST [None]
  - DYSPNOEA [None]
  - RENAL FAILURE ACUTE [None]
